FAERS Safety Report 8132633-3 (Version None)
Quarter: 2012Q1

REPORT INFORMATION
  Report Type: 
  Country: None (occurrence: None)
  Receive Date: 20120213
  Receipt Date: 20120131
  Transmission Date: 20120608
  Serious: Yes (Congenital Anomaly, Other)
  Sender: FDA-Public Use
  Company Number: US-VIIV HEALTHCARE LIMITED-A0965399A

PATIENT
  Sex: Female
  Weight: 2.9 kg

DRUGS (5)
  1. XANAX [Concomitant]
     Route: 064
  2. KALETRA [Suspect]
     Indication: ANTIRETROVIRAL THERAPY
     Dosage: 4TAB PER DAY
     Route: 064
     Dates: start: 20110905
  3. ALCOHOL [Concomitant]
     Route: 064
  4. COMBIVIR [Suspect]
     Indication: ANTIRETROVIRAL THERAPY
     Dosage: 2TAB PER DAY
     Route: 064
     Dates: start: 20110905
  5. COCAINE [Concomitant]
     Route: 064

REACTIONS (2)
  - FOETAL EXPOSURE DURING PREGNANCY [None]
  - ATRIAL SEPTAL DEFECT [None]
